FAERS Safety Report 6575652-0 (Version None)
Quarter: 2010Q1

REPORT INFORMATION
  Report Type: 
  Country: None (occurrence: None)
  Receive Date: 20100208
  Receipt Date: 20100208
  Transmission Date: 20100710
  Serious: Yes (Death, Life-Threatening)
  Sender: FDA-Public Use
  Company Number: None

PATIENT
  Age: 66 Year
  Sex: Male
  Weight: 98.5666 kg

DRUGS (9)
  1. NOVOLIN 70/30 [Suspect]
     Indication: TYPE 2 DIABETES MELLITUS
     Dosage: 18 UNITS BID SQ
     Route: 058
     Dates: start: 20091217, end: 20100111
  2. PRAMIPEXOLE DIHYDROCHLORIDE [Concomitant]
  3. ZOLPIDEM TARTRATE [Concomitant]
  4. LISINOPRIL [Concomitant]
  5. BUMETANIDE [Concomitant]
  6. METOPROLOL SUCCINATE [Concomitant]
  7. FERROUS GLUCONATE [Concomitant]
  8. ASPIRIN AND DIPYRIDAMOLE [Concomitant]
  9. GABAPENTIN [Concomitant]

REACTIONS (5)
  - ATRIAL FIBRILLATION [None]
  - CARDIAC FAILURE CONGESTIVE [None]
  - EMBOLISM [None]
  - HAEMORRHAGIC STROKE [None]
  - UNRESPONSIVE TO STIMULI [None]
